FAERS Safety Report 24748763 (Version 1)
Quarter: 2024Q4

REPORT INFORMATION
  Report Type: Spontaneous
  Country: GB (occurrence: GB)
  Receive Date: 20241218
  Receipt Date: 20241218
  Transmission Date: 20250114
  Serious: Yes (Other)
  Sender: PFIZER
  Company Number: None

PATIENT
  Age: 20 Year
  Sex: Male

DRUGS (1)
  1. DOXYCYCLINE [Suspect]
     Active Substance: DOXYCYCLINE

REACTIONS (6)
  - Depressed mood [Unknown]
  - Epididymitis [Unknown]
  - Testicular pain [Unknown]
  - Anxiety [Unknown]
  - Fatigue [Unknown]
  - Crying [Unknown]
